APPROVED DRUG PRODUCT: CLINDAMYCIN HYDROCHLORIDE
Active Ingredient: CLINDAMYCIN HYDROCHLORIDE
Strength: EQ 300MG BASE
Dosage Form/Route: CAPSULE;ORAL
Application: A091225 | Product #003
Applicant: PHARMOBEDIENT CONSULTING LLC
Approved: May 31, 2011 | RLD: No | RS: No | Type: DISCN